FAERS Safety Report 5155722-4 (Version None)
Quarter: 2006Q4

REPORT INFORMATION
  Report Type: 
  Country: None (occurrence: None)
  Receive Date: 20061113
  Receipt Date: 20061030
  Transmission Date: 20070319
  Serious: No
  Sender: FDA-Public Use
  Company Number: TPA2006A01787

PATIENT
  Age: 76 Year
  Sex: Female
  Weight: 90.7194 kg

DRUGS (11)
  1. ROZEREM [Suspect]
     Indication: INSOMNIA
     Dosage: 8 MG, HS, PER ORAL
     Route: 048
     Dates: start: 20061001, end: 20061001
  2. ACEON [Concomitant]
  3. MULTIVITAMIN [Concomitant]
  4. CALCIUM [Concomitant]
  5. FLEXAMINE (ALL OTHER THERAPEUTIC PRODUCTS) [Concomitant]
  6. ROZEREM [Suspect]
     Indication: INSOMNIA
     Dosage: 8 MG, HS, PER ORAL
     Route: 048
     Dates: start: 20061001, end: 20061001
  7. ACEON [Concomitant]
  8. MULTIVITAMIN [Concomitant]
  9. CALCIUM [Concomitant]
  10. FLEXAMINE (ALL OTHER THERAPEUTIC PRODUCTS) [Concomitant]
  11. VALIUM [Concomitant]

REACTIONS (1)
  - DRUG INEFFECTIVE [None]
